FAERS Safety Report 10361426 (Version 3)
Quarter: 2014Q4

REPORT INFORMATION
  Report Type: Spontaneous
  Country: BR (occurrence: BR)
  Receive Date: 20140805
  Receipt Date: 20141001
  Transmission Date: 20150528
  Serious: Yes (Death, Other)
  Sender: FDA-Public Use
  Company Number: BR-ROCHE-1379498

PATIENT
  Age: 38 Year
  Sex: Female
  Weight: 54 kg

DRUGS (2)
  1. ZELBORAF [Suspect]
     Active Substance: VEMURAFENIB
     Dosage: DOSE RESTARTED ON 11/APR/2014
     Route: 048
     Dates: start: 20140411
  2. ZELBORAF [Suspect]
     Active Substance: VEMURAFENIB
     Indication: MALIGNANT MELANOMA
     Dosage: DOSE RESTARTED ON 11/APR/2014
     Route: 048
     Dates: start: 20140314, end: 20140331

REACTIONS (3)
  - Disease progression [Fatal]
  - Therapy responder [Unknown]
  - Drug reaction with eosinophilia and systemic symptoms [Not Recovered/Not Resolved]

NARRATIVE: CASE EVENT DATE: 20140330
